FAERS Safety Report 6203724-9 (Version None)
Quarter: 2009Q2

REPORT INFORMATION
  Report Type: 
  Country: None (occurrence: None)
  Receive Date: 20090521
  Receipt Date: 20090507
  Transmission Date: 20091009
  Serious: Yes (Death)
  Sender: FDA-Public Use
  Company Number: ADE# 09-203DPR

PATIENT
  Age: 84 Year
  Sex: Female

DRUGS (1)
  1. DIGOXIN [Suspect]
     Dosage: ONE TABLET DAILY

REACTIONS (3)
  - ABNORMAL BEHAVIOUR [None]
  - ANOREXIA [None]
  - FATIGUE [None]
